FAERS Safety Report 4389474-2 (Version None)
Quarter: 2004Q2

REPORT INFORMATION
  Report Type: 
  Country: None (occurrence: None)
  Receive Date: 20040628
  Receipt Date: 20040518
  Transmission Date: 20050107
  Serious: Yes (Hospitalization, Other)
  Sender: FDA-Public Use
  Company Number: US-JNJFOC-20031104251

PATIENT
  Age: 32 Year
  Sex: Female
  Weight: 49.8957 kg

DRUGS (13)
  1. REMICADE [Suspect]
     Indication: CROHN'S DISEASE
     Dosage: 250 MG, 1 IN 8 WEEK, INTRAVENOUS
     Route: 042
     Dates: start: 20030401
  2. REMICADE [Suspect]
     Indication: CROHN'S DISEASE
     Dosage: 250 MG, 1 IN 8 WEEK, INTRAVENOUS
     Route: 042
     Dates: start: 20031001
  3. PREDNISONE TAB [Concomitant]
  4. TRAZODONE HCL [Concomitant]
  5. SOLU-MEDROL [Concomitant]
  6. REGLAN [Concomitant]
  7. FESO4 (FERROUS SULFATE) [Concomitant]
  8. NIFEDIPINE [Concomitant]
  9. DARVOCET-N 100 [Concomitant]
  10. OXYCODONE HCL [Concomitant]
  11. ADVIL [Concomitant]
  12. HYDRALAZINE HCL TAB [Concomitant]
  13. MAGNESIUM SULFATE [Concomitant]

REACTIONS (8)
  - BACK PAIN [None]
  - CONDITION AGGRAVATED [None]
  - CROHN'S DISEASE [None]
  - DRUG EXPOSURE DURING PREGNANCY [None]
  - PAIN [None]
  - POLYHYDRAMNIOS [None]
  - PREGNANCY INDUCED HYPERTENSION [None]
  - UTERINE CONTRACTIONS DURING PREGNANCY [None]
